FAERS Safety Report 13719239 (Version 4)
Quarter: 2017Q4

REPORT INFORMATION
  Report Type: Spontaneous
  Country: US (occurrence: US)
  Receive Date: 20170705
  Receipt Date: 20171011
  Transmission Date: 20180320
  Serious: No
  Sender: FDA-Public Use
  Company Number: US-GE HEALTHCARE LIFE SCIENCES-2017CSU001894

PATIENT
  Sex: Female

DRUGS (17)
  1. COENZYME Q10 [Concomitant]
     Active Substance: UBIDECARENONE
  2. PROBIOTIC                          /06395501/ [Concomitant]
     Active Substance: BIFIDOBACTERIUM ANIMALIS LACTIS
  3. FISH OIL [Concomitant]
     Active Substance: FISH OIL
  4. METOPROLOL. [Concomitant]
     Active Substance: METOPROLOL
  5. DEXILANT [Concomitant]
     Active Substance: DEXLANSOPRAZOLE
  6. ASPIRIN                            /00002701/ [Concomitant]
     Active Substance: ASPIRIN
  7. PROLIA [Concomitant]
     Active Substance: DENOSUMAB
  8. DATSCAN [Suspect]
     Active Substance: IODINE\IOFLUPANE I-123
     Indication: PARKINSON^S DISEASE
     Dosage: UNK, SINGLE
     Route: 065
     Dates: start: 20170627, end: 20170627
  9. VITAMIN D3 [Concomitant]
     Active Substance: CHOLECALCIFEROL
  10. PRESERVISION [Concomitant]
     Active Substance: MINERALS\VITAMINS
  11. PRISTIQ EXTENDED-RELEASE [Concomitant]
     Active Substance: DESVENLAFAXINE SUCCINATE
  12. MULTIVITAMIN                       /00097801/ [Concomitant]
     Active Substance: VITAMINS
  13. LEVOTHYROXINE. [Concomitant]
     Active Substance: LEVOTHYROXINE
  14. ATORVASTATIN [Concomitant]
     Active Substance: ATORVASTATIN
  15. B COMPLEX                          /00322001/ [Concomitant]
     Active Substance: CALCIUM PANTOTHENATE\CYANOCOBALAMIN\NIACINAMIDE\PYRIDOXINE HYDROCHLORIDE\RIBOFLAVIN\THIAMINE HYDROCHLORIDE
  16. VITAMIN B12 [Concomitant]
     Active Substance: CYANOCOBALAMIN
  17. QUETIAPINE. [Concomitant]
     Active Substance: QUETIAPINE

REACTIONS (2)
  - Radioisotope scan abnormal [Recovered/Resolved]
  - No adverse event [Recovered/Resolved]
